FAERS Safety Report 4584673-9 (Version None)
Quarter: 2005Q1

REPORT INFORMATION
  Report Type: 
  Country: None (occurrence: None)
  Receive Date: 20050125
  Receipt Date: 20040915
  Transmission Date: 20050727
  Serious: No
  Sender: FDA-Public Use
  Company Number: USA040978402

PATIENT
  Age: 81 Year
  Sex: Female

DRUGS (1)
  1. FORTEO [Suspect]
     Indication: BODY HEIGHT DECREASED
     Dosage: 20 UG/1 DAY
     Dates: start: 20040701

REACTIONS (1)
  - INJECTION SITE IRRITATION [None]
